FAERS Safety Report 23433640 (Version 2)
Quarter: 2024Q1

REPORT INFORMATION
  Report Type: Spontaneous
  Country: US (occurrence: US)
  Receive Date: 20240123
  Receipt Date: 20240126
  Transmission Date: 20240410
  Serious: No
  Sender: FDA-Public Use
  Company Number: US-PURDUE-USA-2024-0307226

PATIENT
  Sex: Male

DRUGS (2)
  1. BUPRENORPHINE [Suspect]
     Active Substance: BUPRENORPHINE
     Indication: Pain management
     Dosage: 10MCG/HR
     Route: 062
  2. BUPRENORPHINE [Suspect]
     Active Substance: BUPRENORPHINE
     Dosage: 20 MCG/HR
     Route: 062

REACTIONS (2)
  - Infection [Unknown]
  - Blood glucose increased [Recovering/Resolving]
